FAERS Safety Report 5244780-4 (Version None)
Quarter: 2007Q1

REPORT INFORMATION
  Report Type: 
  Country: None (occurrence: None)
  Receive Date: 20070216
  Receipt Date: 20070206
  Transmission Date: 20070707
  Serious: Yes (Hospitalization)
  Sender: FDA-Public Use
  Company Number: GXKR2006PL07591

PATIENT
  Age: 15 Year
  Sex: Male

DRUGS (1)
  1. CEFUROXIME AXETIL [Suspect]
     Indication: TONSILLITIS
     Dosage: 500 MG, ORAL
     Route: 048
     Dates: start: 20060812, end: 20060812

REACTIONS (12)
  - ANAPHYLACTIC SHOCK [None]
  - ASTHENIA [None]
  - CYANOSIS [None]
  - DYSPNOEA [None]
  - HAEMODYNAMIC INSTABILITY [None]
  - OCULAR HYPERAEMIA [None]
  - PYREXIA [None]
  - RASH PRURITIC [None]
  - SHOCK [None]
  - TREMOR [None]
  - VISION BLURRED [None]
  - VOMITING [None]
